FAERS Safety Report 7817860 (Version 3)
Quarter: 2012Q4

REPORT INFORMATION
  Report Type: 
  Country: US (occurrence: US)
  Receive Date: 20110217
  Receipt Date: 20120829
  Transmission Date: 20130627
  Serious: No
  Sender: FDA-Public Use
  Company Number: US-BIOGENIDEC-2011BI005073

PATIENT
  Age: 42 Year
  Sex: Female

DRUGS (7)
  1. TYSABRI [Suspect]
     Indication: MULTIPLE SCLEROSIS
     Route: 042
     Dates: start: 20071108
  2. BACLOFEN [Concomitant]
     Indication: PAIN
  3. HYDROCODONE [Concomitant]
     Indication: PAIN
  4. VICOPROFEN [Concomitant]
     Indication: PAIN
  5. NEUROTNIN [Concomitant]
     Indication: PAIN
  6. ULTRAM [Concomitant]
     Indication: PAIN
  7. TRILEPTAL [Concomitant]
     Indication: PAIN

REACTIONS (10)
  - Cognitive disorder [Not Recovered/Not Resolved]
  - Memory impairment [Not Recovered/Not Resolved]
  - Stress [Unknown]
  - Balance disorder [Not Recovered/Not Resolved]
  - Dysarthria [Not Recovered/Not Resolved]
  - Fibromyalgia [Recovered/Resolved]
  - Pain [Not Recovered/Not Resolved]
  - Gait disturbance [Not Recovered/Not Resolved]
  - Sinusitis [Not Recovered/Not Resolved]
  - Headache [Not Recovered/Not Resolved]
